FAERS Safety Report 5679023-0 (Version None)
Quarter: 2008Q1

REPORT INFORMATION
  Report Type: 
  Country: None (occurrence: None)
  Receive Date: 20080321
  Receipt Date: 20080318
  Transmission Date: 20080703
  Serious: Yes (Other)
  Sender: FDA-Public Use
  Company Number: 2008S1002112

PATIENT
  Age: 62 Year
  Sex: Female
  Weight: 63.5036 kg

DRUGS (2)
  1. FLEET ENEMA (SODIUM PHOSPHATE) [Suspect]
     Indication: LAXATIVE SUPPORTIVE CARE
     Dosage: 133 ML;X1;RTL
     Route: 054
     Dates: start: 20080318, end: 20080318
  2. FLEET MINERAL OIL ENEMA [Suspect]
     Dosage: 133 ML;X1;RTL
     Route: 054
     Dates: start: 20080318, end: 20080318

REACTIONS (4)
  - ABDOMINAL PAIN [None]
  - DRUG INEFFECTIVE [None]
  - NEPHROLITHIASIS [None]
  - VOMITING [None]
